FAERS Safety Report 4702434-4 (Version None)
Quarter: 2005Q2

REPORT INFORMATION
  Report Type: 
  Country: None (occurrence: None)
  Receive Date: 20050629
  Receipt Date: 20050620
  Transmission Date: 20051028
  Serious: Yes (Other)
  Sender: FDA-Public Use
  Company Number: US-BRISTOL-MYERS SQUIBB COMPANY-13009790

PATIENT
  Age: 49 Year
  Sex: Female

DRUGS (14)
  1. PRAVACOL TABS [Suspect]
     Indication: BLOOD CHOLESTEROL INCREASED
     Dates: start: 20050503, end: 20050617
  2. LASIX [Concomitant]
  3. POTASSIUM CHLORIDE [Concomitant]
  4. CELEXA [Concomitant]
  5. NEXIUM [Concomitant]
  6. SINGULAIR [Concomitant]
  7. OXYGEN [Concomitant]
     Route: 045
  8. ALBUTEROL [Concomitant]
  9. ADVAIR [Concomitant]
  10. CARDIZEM [Concomitant]
  11. AVANDIA [Concomitant]
  12. PERCOCET [Concomitant]
  13. CALCIUM GLUCONATE [Concomitant]
     Dates: end: 20050601
  14. IRON [Concomitant]

REACTIONS (3)
  - INFLUENZA [None]
  - PAIN IN EXTREMITY [None]
  - URINARY RETENTION [None]
